FAERS Safety Report 25669597 (Version 1)
Quarter: 2025Q3

REPORT INFORMATION
  Report Type: Spontaneous
  Country: US (occurrence: None)
  Receive Date: 20250810
  Receipt Date: 20250810
  Transmission Date: 20251021
  Serious: No
  Sender: FDA-CTU
  Company Number: None

PATIENT
  Age: 34 Year
  Sex: Female
  Weight: 106.59 kg

DRUGS (4)
  1. MIRENA [Suspect]
     Active Substance: LEVONORGESTREL
  2. Multivitmain [Concomitant]
  3. PANTOPRAZOLE SODIUM [Concomitant]
     Active Substance: PANTOPRAZOLE SODIUM
  4. DULOXETINE [Concomitant]
     Active Substance: DULOXETINE

REACTIONS (3)
  - Abdominal pain lower [None]
  - Vaginal haemorrhage [None]
  - Vaginal discharge [None]

NARRATIVE: CASE EVENT DATE: 20240805
